FAERS Safety Report 22637358 (Version 1)
Quarter: 2023Q2

REPORT INFORMATION
  Report Type: Spontaneous
  Country: US (occurrence: None)
  Receive Date: 20230623
  Receipt Date: 20230623
  Transmission Date: 20230722
  Serious: No
  Sender: FDA-Public Use
  Company Number: None

PATIENT

DRUGS (2)
  1. LEFLUNOMIDE [Suspect]
     Active Substance: LEFLUNOMIDE
  2. AUBAGIO [Suspect]
     Active Substance: TERIFLUNOMIDE

REACTIONS (5)
  - Transcription medication error [None]
  - Product dispensing error [None]
  - Wrong product administered [None]
  - Product name confusion [None]
  - Product name confusion [None]
